FAERS Safety Report 6124116-7 (Version None)
Quarter: 2009Q1

REPORT INFORMATION
  Report Type: 
  Country: None (occurrence: None)
  Receive Date: 20090319
  Receipt Date: 20090310
  Transmission Date: 20090719
  Serious: Yes (Hospitalization)
  Sender: FDA-Public Use
  Company Number: AU-ROCHE-620551

PATIENT
  Sex: Female

DRUGS (4)
  1. ISOTRETINOIN [Suspect]
     Indication: ACNE
     Route: 048
     Dates: end: 20081119
  2. ERYTHROMYCIN [Suspect]
     Indication: VOMITING
     Route: 065
     Dates: start: 20081119, end: 20081119
  3. ETHINYL ESTRADIOL AND NORETHINDRONE [Suspect]
     Indication: CONTRACEPTION
     Dosage: DOSE: 1 DOSE UNSPECIFIED.
     Route: 048
     Dates: end: 20081119
  4. METOCLOPRAMIDE [Suspect]
     Indication: VOMITING
     Dosage: DRUG: METOCLOPRAMIDE HYDROCHLORIDE.
     Route: 048
     Dates: start: 20081109, end: 20081119

REACTIONS (5)
  - DIARRHOEA [None]
  - HYPERHIDROSIS [None]
  - LIVER FUNCTION TEST ABNORMAL [None]
  - NAUSEA [None]
  - PYREXIA [None]
